FAERS Safety Report 21207677 (Version 1)
Quarter: 2022Q3

REPORT INFORMATION
  Report Type: Spontaneous
  Country: US (occurrence: US)
  Receive Date: 20220812
  Receipt Date: 20220812
  Transmission Date: 20221027
  Serious: Yes (Other)
  Sender: FDA-Public Use
  Company Number: US-SA-SAC20220811000072

PATIENT
  Age: 63 Year
  Sex: Female

DRUGS (1)
  1. AUBAGIO [Suspect]
     Active Substance: TERIFLUNOMIDE
     Indication: Multiple sclerosis
     Dosage: 14 MG, QD
     Route: 048
     Dates: start: 20211025

REACTIONS (7)
  - Multiple sclerosis relapse [Unknown]
  - Intervertebral disc protrusion [Unknown]
  - Back pain [Unknown]
  - Pain in extremity [Unknown]
  - Inflammation [Unknown]
  - Arthralgia [Unknown]
  - Hypoaesthesia [Unknown]
